FAERS Safety Report 13229325 (Version 1)
Quarter: 2017Q1

REPORT INFORMATION
  Report Type: Spontaneous
  Country: US (occurrence: US)
  Receive Date: 20170214
  Receipt Date: 20170214
  Transmission Date: 20170428
  Serious: No
  Sender: FDA-Public Use
  Company Number: US-AUROBINDO-AUR-APL-2016-01515

PATIENT
  Age: 81 Year
  Sex: Male
  Weight: 70.31 kg

DRUGS (1)
  1. SIMVASTATIN TABLETS USP 20 MG [Suspect]
     Active Substance: SIMVASTATIN
     Indication: BLOOD CHOLESTEROL
     Dosage: 20 MG, AT BED TIME
     Route: 065

REACTIONS (1)
  - Blood cholesterol decreased [Unknown]

NARRATIVE: CASE EVENT DATE: 201512
